FAERS Safety Report 8770687 (Version 2)
Quarter: 2012Q4

REPORT INFORMATION
  Report Type: 
  Country: US (occurrence: US)
  Receive Date: 20120906
  Receipt Date: 20121009
  Transmission Date: 20130627
  Serious: Yes (Other)
  Sender: FDA-Public Use
  Company Number: US-JNJFOC-20120814671

PATIENT

DRUGS (2)
  1. INFLIXIMAB, RECOMBINANT [Suspect]
     Indication: UVEITIS
     Route: 042
  2. UNSPECIFIED IMMUNOMODULATOR [Suspect]
     Indication: UVEITIS
     Route: 065

REACTIONS (3)
  - Lupus-like syndrome [Unknown]
  - Antinuclear antibody increased [Unknown]
  - Arthralgia [Unknown]
